FAERS Safety Report 14039060 (Version 1)
Quarter: 2017Q4

REPORT INFORMATION
  Report Type: Spontaneous
  Country: US (occurrence: US)
  Receive Date: 20171004
  Receipt Date: 20171004
  Transmission Date: 20180321
  Serious: No
  Sender: FDA-Public Use
  Company Number: US-INDIVIOR LIMITED-INDV-098186-2017

PATIENT
  Age: 43 Year
  Sex: Male
  Weight: 72 kg

DRUGS (2)
  1. SUBOXONE [Suspect]
     Active Substance: BUPRENORPHINE HYDROCHLORIDE\NALOXONE HYDROCHLORIDE
     Indication: PRODUCT USED FOR UNKNOWN INDICATION
     Dosage: 2MG, THREE TIMES A DAY
     Route: 060
     Dates: start: 20170119, end: 20170120
  2. SUBOXONE [Suspect]
     Active Substance: BUPRENORPHINE HYDROCHLORIDE\NALOXONE HYDROCHLORIDE
     Dosage: 2 MG, THREE TIMES A DAY
     Route: 065
     Dates: start: 20170303, end: 20170304

REACTIONS (8)
  - Chills [Unknown]
  - Drug effect incomplete [Unknown]
  - Hyperhidrosis [Unknown]
  - Heart rate increased [Unknown]
  - Drug withdrawal syndrome [Unknown]
  - Tremor [Unknown]
  - Fatigue [Unknown]
  - Product use issue [Recovered/Resolved]

NARRATIVE: CASE EVENT DATE: 20170119
